FAERS Safety Report 24167535 (Version 1)
Quarter: 2024Q3

REPORT INFORMATION
  Report Type: Spontaneous
  Country: US (occurrence: None)
  Receive Date: 20240801
  Receipt Date: 20240801
  Transmission Date: 20241016
  Serious: Yes (Death, Other)
  Sender: Public
  Company Number: None

PATIENT
  Age: 71 Year
  Sex: Female

DRUGS (1)
  1. POMALYST [Suspect]
     Active Substance: POMALIDOMIDE
     Indication: Plasma cell myeloma
     Dosage: FREQUENCY : DAILY;?
     Route: 048
     Dates: start: 20240517, end: 20240624

REACTIONS (7)
  - Nausea [None]
  - Vomiting [None]
  - Abdominal distension [None]
  - Discomfort [None]
  - Platelet count decreased [None]
  - Plasma cell myeloma [None]
  - Hospice care [None]

NARRATIVE: CASE EVENT DATE: 20240626
